FAERS Safety Report 7435322-3 (Version None)
Quarter: 2011Q2

REPORT INFORMATION
  Report Type: 
  Country: None (occurrence: None)
  Receive Date: 20110425
  Receipt Date: 20110419
  Transmission Date: 20111010
  Serious: Yes (Hospitalization)
  Sender: FDA-Public Use
  Company Number: A0798442A

PATIENT
  Age: 60 Year
  Sex: Female
  Weight: 99.1 kg

DRUGS (9)
  1. LISINOPRIL AND HYDROCHLOROTHIAZIDE [Concomitant]
  2. AVELOX [Concomitant]
  3. AVANDIA [Suspect]
     Dosage: 8MG PER DAY
     Route: 048
     Dates: start: 20020101, end: 20080326
  4. METFORMIN [Concomitant]
  5. AMARYL [Concomitant]
  6. GLYBURIDE [Concomitant]
  7. INSULIN [Concomitant]
  8. ATENOLOL [Concomitant]
  9. LIPITOR [Concomitant]

REACTIONS (2)
  - MYOCARDIAL ISCHAEMIA [None]
  - MYOCARDIAL INFARCTION [None]
